FAERS Safety Report 6881423-8 (Version None)
Quarter: 2010Q3

REPORT INFORMATION
  Report Type: 
  Country: None (occurrence: None)
  Receive Date: 20100728
  Receipt Date: 20100728
  Transmission Date: 20110219
  Serious: Yes (Congenital Anomaly)
  Sender: FDA-Public Use
  Company Number: None

PATIENT
  Age: 26 Year
  Sex: Female
  Weight: 56.6996 kg

DRUGS (1)
  1. AMBIEN [Suspect]
     Indication: SLEEP DISORDER
     Dosage: 1 A DAY PO  WEEKS AT A TIME
     Route: 048

REACTIONS (3)
  - COGNITIVE DISORDER [None]
  - DEPENDENCE [None]
  - PRODUCT QUALITY ISSUE [None]
